FAERS Safety Report 12280157 (Version 2)
Quarter: 2016Q3

REPORT INFORMATION
  Report Type: Spontaneous
  Country: JP (occurrence: JP)
  Receive Date: 20160419
  Receipt Date: 20160726
  Transmission Date: 20161109
  Serious: No
  Sender: FDA-Public Use
  Company Number: JP-LUPIN PHARMACEUTICALS INC.-2016-01328

PATIENT
  Age: 46 Year
  Sex: Male

DRUGS (2)
  1. LEVOFLOXACIN TABLETS 500 MG [Suspect]
     Active Substance: LEVOFLOXACIN
     Indication: INFECTION PROPHYLAXIS
     Route: 065
     Dates: start: 20160306
  2. FLUMARIN [Concomitant]
     Active Substance: FLOMOXEF SODIUM
     Indication: INFECTION PROPHYLAXIS
     Route: 041
     Dates: start: 20160303, end: 20160306

REACTIONS (1)
  - Fixed drug eruption [Recovering/Resolving]

NARRATIVE: CASE EVENT DATE: 20160307
